FAERS Safety Report 4889972-9 (Version None)
Quarter: 2006Q1

REPORT INFORMATION
  Report Type: 
  Country: None (occurrence: None)
  Receive Date: 20060123
  Receipt Date: 20060123
  Transmission Date: 20060701
  Serious: No
  Sender: FDA-Public Use
  Company Number: None

PATIENT
  Age: 51 Year
  Sex: Female
  Weight: 72.7 kg

DRUGS (1)
  1. CUBICIN [Suspect]
     Indication: SINUSITIS
     Dosage: 290 MG   Q24H   IV
     Route: 042
     Dates: start: 20051219, end: 20051222

REACTIONS (12)
  - ACTIVITIES OF DAILY LIVING IMPAIRED [None]
  - AGITATION [None]
  - ASTHENIA [None]
  - CONFUSIONAL STATE [None]
  - EYELID OEDEMA [None]
  - IMPAIRED DRIVING ABILITY [None]
  - IRRITABLE BOWEL SYNDROME [None]
  - MUSCLE SPASMS [None]
  - MYALGIA [None]
  - NERVOUS SYSTEM DISORDER [None]
  - OEDEMA PERIPHERAL [None]
  - VISION BLURRED [None]
